FAERS Safety Report 6852273-3 (Version None)
Quarter: 2010Q3

REPORT INFORMATION
  Report Type: 
  Country: None (occurrence: None)
  Receive Date: 20100717
  Receipt Date: 20071108
  Transmission Date: 20110219
  Serious: No
  Sender: FDA-Public Use
  Company Number: US-PFIZER INC-2007096591

PATIENT
  Sex: Female
  Weight: 69.4 kg

DRUGS (9)
  1. CHANTIX [Suspect]
     Indication: SMOKING CESSATION THERAPY
     Route: 048
     Dates: start: 20071029, end: 20071108
  2. AMBIEN [Concomitant]
  3. INSULIN DETEMIR [Concomitant]
  4. ALL OTHER THERAPEUTIC PRODUCTS [Concomitant]
  5. ISOSORBIDE [Concomitant]
  6. FOSAMAX [Concomitant]
  7. ACETYLSALICYLIC ACID [Concomitant]
  8. LORTAB [Concomitant]
  9. NOVOLOG [Concomitant]

REACTIONS (3)
  - ARTERY DISSECTION [None]
  - NAUSEA [None]
  - VOMITING [None]
